FAERS Safety Report 11064290 (Version 2)
Quarter: 2015Q2

REPORT INFORMATION
  Report Type: Spontaneous
  Country: IT (occurrence: IT)
  Receive Date: 20150424
  Receipt Date: 20150505
  Transmission Date: 20150821
  Serious: Yes (Death, Hospitalization)
  Sender: FDA-Public Use
  Company Number: IT-MALLINCKRODT-T201502199

PATIENT
  Age: 57 Year
  Sex: Male

DRUGS (11)
  1. CEFTRIAXONE. [Concomitant]
     Active Substance: CEFTRIAXONE
     Dosage: UNK
     Dates: start: 20150316, end: 20150319
  2. VANCOMICINA [Concomitant]
     Active Substance: VANCOMYCIN
     Dosage: UNK
  3. CARDURA [Concomitant]
     Active Substance: DOXAZOSIN MESYLATE
     Dosage: UNK
  4. HUMALOG MIX [Concomitant]
     Active Substance: INSULIN LISPRO
     Dosage: UNK
  5. SIMVASTATIN. [Concomitant]
     Active Substance: SIMVASTATIN
     Dosage: UNK
  6. OFIRMEV [Suspect]
     Active Substance: ACETAMINOPHEN
     Indication: HYPERPYREXIA
     Dosage: 3 G, UNK
     Route: 042
     Dates: start: 20150321, end: 20150322
  7. CLEXANE T [Concomitant]
     Active Substance: ENOXAPARIN SODIUM
     Dosage: UNK
  8. FUROSEMIDE. [Concomitant]
     Active Substance: FUROSEMIDE
     Dosage: UNK
  9. MEROPENEM. [Concomitant]
     Active Substance: MEROPENEM
  10. CATAPRESAN [Concomitant]
     Active Substance: CLONIDINE
     Dosage: UNK
  11. NITRODERM [Concomitant]
     Active Substance: NITROGLYCERIN
     Dosage: UNK

REACTIONS (2)
  - Cardiac arrest [Fatal]
  - Liver disorder [Recovering/Resolving]

NARRATIVE: CASE EVENT DATE: 20150322
